FAERS Safety Report 23757964 (Version 1)
Quarter: 2024Q2

REPORT INFORMATION
  Report Type: Spontaneous
  Country: PT (occurrence: DE)
  Receive Date: 20240418
  Receipt Date: 20240418
  Transmission Date: 20240716
  Serious: Yes (Other)
  Sender: FDA-Public Use
  Company Number: DE-BIAL-BIAL-16547

PATIENT

DRUGS (8)
  1. ESLICARBAZEPINE ACETATE [Suspect]
     Active Substance: ESLICARBAZEPINE ACETATE
     Indication: Lennox-Gastaut syndrome
     Dosage: UNK, UNKNOWN
     Route: 065
  2. ZONISAMIDE [Suspect]
     Active Substance: ZONISAMIDE
     Indication: Lennox-Gastaut syndrome
     Dosage: UNK UNK, UNKNOWN
     Route: 065
     Dates: start: 2016
  3. VALPROATE [Suspect]
     Active Substance: VALPROIC ACID
     Indication: Lennox-Gastaut syndrome
     Dosage: UNK, UNKNOWN
     Route: 065
     Dates: start: 2016
  4. LAMOTRIGINE [Suspect]
     Active Substance: LAMOTRIGINE
     Indication: Lennox-Gastaut syndrome
     Dosage: UNK, UNKNOWN
     Route: 065
     Dates: start: 2016
  5. BRIVIACT [Suspect]
     Active Substance: BRIVARACETAM
     Indication: Lennox-Gastaut syndrome
     Dosage: UNK, UNKNOWN
     Route: 065
     Dates: start: 2016
  6. CLOBAZAM [Suspect]
     Active Substance: CLOBAZAM
     Indication: Lennox-Gastaut syndrome
     Dosage: UNK, UNKNOWN
     Dates: end: 2018
  7. PHENOBARBITAL [Suspect]
     Active Substance: PHENOBARBITAL
     Indication: Lennox-Gastaut syndrome
     Dosage: UNK, UNKNOWN
     Route: 065
     Dates: start: 2016
  8. LACOSAMIDE [Suspect]
     Active Substance: LACOSAMIDE
     Indication: Lennox-Gastaut syndrome
     Dosage: 2X100 MG
     Route: 065
     Dates: start: 2018

REACTIONS (2)
  - Seizure [Unknown]
  - Off label use [Recovered/Resolved]
